FAERS Safety Report 18158238 (Version 2)
Quarter: 2021Q1

REPORT INFORMATION
  Report Type: Report from Study
  Country: BE (occurrence: BE)
  Receive Date: 20200817
  Receipt Date: 20210317
  Transmission Date: 20210419
  Serious: Yes (Hospitalization)
  Sender: FDA-Public Use
  Company Number: BE-PFIZER INC-2020315665

PATIENT
  Age: 65 Year
  Sex: Male
  Weight: 145 kg

DRUGS (3)
  1. AVELUMAB [Suspect]
     Active Substance: AVELUMAB
     Indication: BLADDER TRANSITIONAL CELL CARCINOMA
     Dosage: 1360 MG, CYCLIC (EVERY 2 WEEKS)
     Route: 042
     Dates: start: 20200429, end: 20200612
  2. PACLITAXEL. [Suspect]
     Active Substance: PACLITAXEL
     Indication: BLADDER TRANSITIONAL CELL CARCINOMA
     Dosage: 176 MG, CYCLIC (EVERY 4 WEEKS)
     Route: 042
     Dates: start: 20200429, end: 20200612
  3. GEMCITABINE HYDROCHLORIDE. [Suspect]
     Active Substance: GEMCITABINE HYDROCHLORIDE
     Indication: BLADDER TRANSITIONAL CELL CARCINOMA
     Dosage: 2000 MG, CYCLIC (EVERY 4 WEEKS)
     Route: 042
     Dates: start: 20200429, end: 20200612

REACTIONS (1)
  - Pyelonephritis [Recovered/Resolved]

NARRATIVE: CASE EVENT DATE: 20200727
